FAERS Safety Report 8092915-0 (Version None)
Quarter: 2012Q1

REPORT INFORMATION
  Report Type: 
  Country: None (occurrence: None)
  Receive Date: 20120128
  Receipt Date: 20110920
  Transmission Date: 20120608
  Serious: Yes (Other)
  Sender: FDA-Public Use
  Company Number: US-ABBOTT-05P-163-0296258-00

PATIENT
  Sex: Male
  Weight: 56.296 kg

DRUGS (11)
  1. CELEBREX [Concomitant]
     Indication: RHEUMATOID ARTHRITIS
     Route: 048
  2. HUMIRA [Suspect]
     Indication: RHEUMATOID ARTHRITIS
     Route: 058
     Dates: start: 20030101, end: 20040101
  3. HUMIRA [Suspect]
     Route: 058
     Dates: start: 20040101, end: 20100101
  4. CALCIUM [Concomitant]
     Indication: RHEUMATOID ARTHRITIS
     Route: 048
  5. PERCOCET [Concomitant]
     Indication: RHEUMATOID ARTHRITIS
     Route: 048
  6. PREDNISONE TAB [Concomitant]
     Indication: RHEUMATOID ARTHRITIS
     Route: 048
  7. FOSAMAX [Concomitant]
     Indication: PRODUCT USED FOR UNKNOWN INDICATION
     Route: 048
  8. UNKNOWN MEDICATION [Concomitant]
     Indication: BLOOD CHOLESTEROL INCREASED
  9. FOLIC ACID [Concomitant]
     Indication: VITAMIN SUPPLEMENTATION
  10. HUMIRA [Suspect]
     Route: 058
     Dates: start: 20100101
  11. METHOTREXATE [Concomitant]
     Indication: RHEUMATOID ARTHRITIS

REACTIONS (9)
  - DRUG INEFFECTIVE [None]
  - RHEUMATOID ARTHRITIS [None]
  - INSOMNIA [None]
  - LOWER LIMB FRACTURE [None]
  - ARTHRALGIA [None]
  - NASOPHARYNGITIS [None]
  - JOINT STIFFNESS [None]
  - FALL [None]
  - DRUG EFFECT DECREASED [None]
